FAERS Safety Report 9381581 (Version 3)
Quarter: 2013Q4

REPORT INFORMATION
  Report Type: Spontaneous
  Country: JP (occurrence: JP)
  Receive Date: 20130703
  Receipt Date: 20131025
  Transmission Date: 20140711
  Serious: Yes (Disabling, Other)
  Sender: FDA-Public Use
  Company Number: JP-ASTRAZENECA-2013SE49543

PATIENT
  Age: 24068 Day
  Sex: Male
  Weight: 67 kg

DRUGS (6)
  1. MARCAIN SPINAL [Suspect]
     Indication: SPINAL ANAESTHESIA
     Route: 037
     Dates: start: 20130612, end: 20130612
  2. DIPRIVAN [Concomitant]
     Indication: GENERAL ANAESTHESIA
     Route: 042
     Dates: start: 20130612, end: 20130612
  3. POPSCAINE [Concomitant]
     Indication: POSTOPERATIVE ANALGESIA
     Route: 008
     Dates: start: 20130612, end: 20130613
  4. POPSCAINE [Concomitant]
     Indication: NERVE BLOCK
     Route: 008
     Dates: start: 20130612, end: 20130613
  5. POPSCAINE [Concomitant]
     Indication: POSTOPERATIVE ANALGESIA
     Route: 053
     Dates: start: 20130612, end: 20130612
  6. POPSCAINE [Concomitant]
     Indication: NERVE BLOCK
     Route: 053
     Dates: start: 20130612, end: 20130612

REACTIONS (1)
  - Cauda equina syndrome [Recovered/Resolved with Sequelae]
